FAERS Safety Report 7617469-1 (Version None)
Quarter: 2011Q3

REPORT INFORMATION
  Report Type: 
  Country: None (occurrence: None)
  Receive Date: 20110718
  Receipt Date: 20110713
  Transmission Date: 20111222
  Serious: No
  Sender: FDA-Public Use
  Company Number: US-PFIZER INC-2011159246

PATIENT
  Sex: Female
  Weight: 73.923 kg

DRUGS (3)
  1. TOVIAZ [Suspect]
     Indication: CYSTITIS INTERSTITIAL
     Dosage: 4 MG, DAILY
     Dates: start: 20110628
  2. OXYBUTYNIN [Suspect]
     Indication: CYSTITIS INTERSTITIAL
     Dosage: 10 MG, DAILY
     Dates: end: 20110628
  3. CYCLOSPORINE [Suspect]
     Indication: DRY EYE
     Dosage: UNK
     Route: 047

REACTIONS (3)
  - CONSTIPATION [None]
  - DRY EYE [None]
  - EYE IRRITATION [None]
